FAERS Safety Report 17996012 (Version 1)
Quarter: 2020Q3

REPORT INFORMATION
  Report Type: Spontaneous
  Country: AR (occurrence: AR)
  Receive Date: 20200708
  Receipt Date: 20200708
  Transmission Date: 20201103
  Serious: Yes (Other)
  Sender: FDA-Public Use
  Company Number: AR-AMGEN-ARGSP2020109521

PATIENT
  Age: 72 Year
  Sex: Female

DRUGS (1)
  1. ENBREL [Suspect]
     Active Substance: ETANERCEPT
     Indication: RHEUMATOID ARTHRITIS
     Dosage: 50 MG, WEEKLY
     Route: 065
     Dates: start: 20190606, end: 20200518

REACTIONS (7)
  - Depression [Recovering/Resolving]
  - Muscular weakness [Recovered/Resolved]
  - Hand deformity [Recovered/Resolved]
  - Finger deformity [Recovered/Resolved]
  - Bone disorder [Recovered/Resolved]
  - Pain in extremity [Recovered/Resolved]
  - Venous occlusion [Unknown]

NARRATIVE: CASE EVENT DATE: 2019
